FAERS Safety Report 8471292-7 (Version None)
Quarter: 2012Q2

REPORT INFORMATION
  Report Type: 
  Country: None (occurrence: None)
  Receive Date: 20120323
  Receipt Date: 20111214
  Transmission Date: 20120825
  Serious: Yes (Other)
  Sender: FDA-Public Use
  Company Number: 163-21880-11110845

PATIENT
  Age: 75 Year
  Sex: Male
  Weight: 101.6057 kg

DRUGS (7)
  1. LISINOPRIL [Concomitant]
  2. METFFORMIN HYDROCHLORIDE [Concomitant]
  3. REVLIMID [Suspect]
     Indication: MULTIPLE MYELOMA
     Dosage: 5 MG, DAILY X 21 DAYS, PO
     Route: 048
     Dates: start: 20111010
  4. GLIPIZIDE [Concomitant]
  5. SIMVASTATIN [Concomitant]
  6. BACTRIM [Concomitant]
  7. MULTIVITAMIN [Concomitant]

REACTIONS (3)
  - BLOOD TEST ABNORMAL [None]
  - FULL BLOOD COUNT DECREASED [None]
  - EPISTAXIS [None]
